FAERS Safety Report 18978298 (Version 1)
Quarter: 2021Q1

REPORT INFORMATION
  Report Type: Spontaneous
  Country: US (occurrence: US)
  Receive Date: 20210307
  Receipt Date: 20210307
  Transmission Date: 20210420
  Serious: No
  Sender: FDA-Public Use
  Company Number: US-TEVA-2021-US-1886790

PATIENT
  Sex: Female

DRUGS (1)
  1. NORA BE [Suspect]
     Active Substance: NORETHINDRONE
     Dosage: HAD BEEN ON THE MEDICATION FOR THREE MONTHS
     Route: 065
     Dates: end: 2021

REACTIONS (1)
  - Menstruation delayed [Unknown]
